FAERS Safety Report 19994321 (Version 1)
Quarter: 2021Q4

REPORT INFORMATION
  Report Type: Spontaneous
  Country: US (occurrence: US)
  Receive Date: 20211025
  Receipt Date: 20211025
  Transmission Date: 20220303
  Serious: No
  Sender: FDA-Public Use
  Company Number: US-ELI_LILLY_AND_COMPANY-US202110009500

PATIENT
  Sex: Female

DRUGS (2)
  1. TRULICITY [Suspect]
     Active Substance: DULAGLUTIDE
     Indication: Product used for unknown indication
     Dosage: 0.75 MG, UNKNOWN
     Route: 058
     Dates: start: 202109
  2. INSULIN NOS [Suspect]
     Active Substance: INSULIN NOS
     Indication: Product used for unknown indication
     Dosage: 40 MG, IN MORNING
     Route: 065

REACTIONS (9)
  - Disturbance in attention [Unknown]
  - Heart rate decreased [Unknown]
  - Dysarthria [Unknown]
  - Dizziness [Unknown]
  - Hyperhidrosis [Unknown]
  - Confusional state [Unknown]
  - Headache [Unknown]
  - Asthenia [Unknown]
  - Flatulence [Unknown]
